FAERS Safety Report 14013277 (Version 1)
Quarter: 2017Q3

REPORT INFORMATION
  Report Type: Spontaneous
  Country: US (occurrence: US)
  Receive Date: 20170926
  Receipt Date: 20170926
  Transmission Date: 20171128
  Serious: Yes (Other)
  Sender: FDA-Public Use
  Company Number: US-PFIZER INC-2017409911

PATIENT
  Age: 68 Year
  Sex: Male

DRUGS (1)
  1. DEFEROXAMINE MESILATE [Suspect]
     Active Substance: DEFEROXAMINE MESYLATE
     Indication: HAEMOCHROMATOSIS
     Dosage: 16 G, WEEKLY

REACTIONS (2)
  - Retinal toxicity [Recovering/Resolving]
  - Maculopathy [Recovering/Resolving]
